FAERS Safety Report 14757756 (Version 2)
Quarter: 2018Q2

REPORT INFORMATION
  Report Type: Spontaneous
  Country: FR (occurrence: FR)
  Receive Date: 20180413
  Receipt Date: 20180413
  Transmission Date: 20180711
  Serious: Yes (Hospitalization, Other)
  Sender: FDA-Public Use
  Company Number: PHHY2017FR202248

PATIENT

DRUGS (14)
  1. MORPHINE [Suspect]
     Active Substance: MORPHINE
     Dosage: 57.7 MG, QD
     Route: 042
     Dates: start: 20160916
  2. VANCOMYCIN [Suspect]
     Active Substance: VANCOMYCIN
     Indication: ANTIBIOTIC PROPHYLAXIS
     Dosage: 1.7 G, QD
     Route: 042
     Dates: start: 20160824
  3. TIENAM [Suspect]
     Active Substance: CILASTATIN SODIUM\IMIPENEM
     Dosage: 430 MG, QD
     Route: 042
     Dates: start: 20160916
  4. ZOPHREN [Suspect]
     Active Substance: ONDANSETRON
     Indication: PROPHYLAXIS OF NAUSEA AND VOMITING
     Dosage: 8 MG, QD
     Route: 042
  5. DEFITELIO [Suspect]
     Active Substance: DEFIBROTIDE SODIUM
     Dosage: 680 MG, QD
     Route: 042
     Dates: start: 20161010
  6. VANCOMYCIN [Suspect]
     Active Substance: VANCOMYCIN
     Dosage: 1.7 G, QD
     Route: 042
     Dates: start: 20160916
  7. DEFITELIO [Suspect]
     Active Substance: DEFIBROTIDE SODIUM
     Indication: PROPHYLAXIS
     Dosage: 680 MG, QD
     Route: 042
     Dates: start: 20160827
  8. MORPHINE [Suspect]
     Active Substance: MORPHINE
     Indication: ANALGESIC THERAPY
     Dosage: 57.7 MG, QD
     Route: 042
     Dates: start: 20160904
  9. HYDROCORTISONE. [Suspect]
     Active Substance: HYDROCORTISONE
     Indication: PRODUCT USED FOR UNKNOWN INDICATION
     Dosage: 20 MG, QD
     Route: 042
     Dates: start: 20160830
  10. CICLOSPORIN [Suspect]
     Active Substance: CYCLOSPORINE
     Indication: PROPHYLAXIS AGAINST TRANSPLANT REJECTION
     Dosage: 80 MG, QD
     Route: 042
     Dates: start: 20160828
  11. ACICLOVIR [Suspect]
     Active Substance: ACYCLOVIR
     Indication: ANTIVIRAL PROPHYLAXIS
     Dosage: 500 MG, QD
     Route: 042
  12. CICLOSPORIN [Suspect]
     Active Substance: CYCLOSPORINE
     Dosage: 80 MG, QD
     Route: 042
     Dates: start: 20170220
  13. HYDROCORTISONE. [Suspect]
     Active Substance: HYDROCORTISONE
     Dosage: 20 MG, QD
     Route: 042
     Dates: start: 20160917
  14. TIENAM [Suspect]
     Active Substance: CILASTATIN SODIUM\IMIPENEM
     Indication: ANTIBIOTIC PROPHYLAXIS
     Dosage: 430 MG, QD
     Route: 042
     Dates: start: 20160904

REACTIONS (2)
  - Haemorrhage [Recovered/Resolved]
  - Thrombocytopenia [Recovered/Resolved]

NARRATIVE: CASE EVENT DATE: 20160908
